FAERS Safety Report 10029214 (Version 1)
Quarter: 2014Q1

REPORT INFORMATION
  Report Type: Spontaneous
  Country: US (occurrence: US)
  Receive Date: 20140321
  Receipt Date: 20140321
  Transmission Date: 20141002
  Serious: Yes (Hospitalization)
  Sender: FDA-Public Use
  Company Number: US-GILEAD-2014-0096980

PATIENT
  Age: 71 Year
  Sex: Male

DRUGS (3)
  1. SOVALDI [Suspect]
     Indication: PRODUCT USED FOR UNKNOWN INDICATION
     Dosage: UNK
     Route: 065
  2. PEGINTERFERON ALFA [Concomitant]
  3. RIBAVIRIN [Concomitant]

REACTIONS (1)
  - Scrotal swelling [Unknown]
